FAERS Safety Report 15243140 (Version 1)
Quarter: 2018Q3

REPORT INFORMATION
  Report Type: Spontaneous
  Country: US (occurrence: US)
  Receive Date: 20180712
  Receipt Date: 20180712
  Transmission Date: 20181010
  Serious: No
  Sender: FDA-Public Use
  Company Number: None

PATIENT
  Age: 58 Year
  Sex: Female

DRUGS (21)
  1. LETAIRIS [Suspect]
     Active Substance: AMBRISENTAN
     Indication: PULMONARY ARTERIAL HYPERTENSION
     Route: 048
     Dates: start: 201712, end: 201804
  2. ONDANSETRON [Concomitant]
     Active Substance: ONDANSETRON
  3. VENTOLIN [Concomitant]
     Active Substance: ALBUTEROL SULFATE
  4. FLONASE [Concomitant]
     Active Substance: FLUTICASONE PROPIONATE
  5. MIDODRINE [Concomitant]
     Active Substance: MIDODRINE
  6. TRAMADOL. [Concomitant]
     Active Substance: TRAMADOL
  7. LOMOTIL [Concomitant]
     Active Substance: ATROPINE SULFATE\DIPHENOXYLATE HYDROCHLORIDE
  8. HYDROXYZINE [Concomitant]
     Active Substance: HYDROXYZINE HYDROCHLORIDE
  9. HALOPERIDOL. [Concomitant]
     Active Substance: HALOPERIDOL
  10. SYMBICORT [Concomitant]
     Active Substance: BUDESONIDE\FORMOTEROL FUMARATE DIHYDRATE
  11. COMBIVENT RESPIMAT [Concomitant]
     Active Substance: ALBUTEROL SULFATE\IPRATROPIUM BROMIDE
  12. K?TAB [Concomitant]
     Active Substance: POTASSIUM CHLORIDE
  13. METOCLOPRAMIDE. [Concomitant]
     Active Substance: METOCLOPRAMIDE
  14. VITAMIN D2 [Concomitant]
     Active Substance: ERGOCALCIFEROL
  15. VELETRI [Concomitant]
     Active Substance: EPOPROSTENOL
  16. DIGOXIN. [Concomitant]
     Active Substance: DIGOXIN
  17. LORATADINE. [Concomitant]
     Active Substance: LORATADINE
  18. MARINOL [Concomitant]
     Active Substance: DRONABINOL
  19. IBUPROFEN. [Concomitant]
     Active Substance: IBUPROFEN
  20. ZOFRAN [Concomitant]
     Active Substance: ONDANSETRON HYDROCHLORIDE
  21. TORSEMIDE. [Concomitant]
     Active Substance: TORSEMIDE

REACTIONS (2)
  - Respiratory failure [None]
  - Hypoxia [None]

NARRATIVE: CASE EVENT DATE: 20180409
